FAERS Safety Report 11109293 (Version 2)
Quarter: 2015Q2

REPORT INFORMATION
  Report Type: Report from Study
  Country: KR (occurrence: KR)
  Receive Date: 20150513
  Receipt Date: 20150520
  Transmission Date: 20150821
  Serious: Yes (Hospitalization)
  Sender: FDA-Public Use
  Company Number: KR-SA-2015SA062656

PATIENT
  Age: 78 Year
  Sex: Male
  Weight: 59.4 kg

DRUGS (1)
  1. MULTAQ [Suspect]
     Active Substance: DRONEDARONE
     Indication: ATRIAL FIBRILLATION

REACTIONS (1)
  - Chronic hepatitis C [Recovered/Resolved]

NARRATIVE: CASE EVENT DATE: 20141229
